FAERS Safety Report 9232786 (Version 2)
Quarter: 2013Q2

REPORT INFORMATION
  Report Type: Spontaneous
  Country: GB (occurrence: GB)
  Receive Date: 20130416
  Receipt Date: 20130502
  Transmission Date: 20140414
  Serious: Yes (Other)
  Sender: FDA-Public Use
  Company Number: GB-JNJFOC-20130400696

PATIENT
  Age: 36 Year
  Sex: Male
  Weight: 100 kg

DRUGS (2)
  1. STELARA [Suspect]
     Indication: PSORIASIS
     Route: 058
     Dates: start: 201108
  2. PERINDOPRIL [Concomitant]
     Indication: HYPERTENSION
     Route: 065

REACTIONS (1)
  - Thrombocytopenia [Recovered/Resolved]
